FAERS Safety Report 6590522-X (Version None)
Quarter: 2010Q1

REPORT INFORMATION
  Report Type: 
  Country: None (occurrence: None)
  Receive Date: 20100219
  Receipt Date: 20100211
  Transmission Date: 20100710
  Serious: Yes (Other)
  Sender: FDA-Public Use
  Company Number: GB-ROCHE-685241

PATIENT
  Sex: Male

DRUGS (2)
  1. PEGASYS [Suspect]
     Indication: HEPATITIS C
     Dosage: REPORTED AS DOSAGE 180 (NO UNITS PROVIDED)
     Route: 065
  2. COPEGUS [Suspect]
     Indication: HEPATITIS C
     Dosage: REPORTED DOSAGE OF 800 (NO UNITS PROVIDED)
     Route: 065

REACTIONS (2)
  - CONVULSION [None]
  - INCONTINENCE [None]
